FAERS Safety Report 7982523-1 (Version None)
Quarter: 2011Q4

REPORT INFORMATION
  Report Type: 
  Country: None (occurrence: None)
  Receive Date: 20111215
  Receipt Date: 20111213
  Transmission Date: 20120403
  Serious: Yes (Death, Other)
  Sender: FDA-Public Use
  Company Number: PHEH2009US11126

PATIENT
  Sex: Male

DRUGS (2)
  1. EXJADE [Suspect]
     Indication: IRON OVERLOAD
     Dosage: 1500 MG, UNK
     Route: 048
     Dates: start: 20081203, end: 20090821
  2. EXJADE [Suspect]
     Indication: MYELODYSPLASTIC SYNDROME
     Dosage: 2000 MG, UNK
     Route: 048
     Dates: start: 20080328

REACTIONS (4)
  - DIABETES MELLITUS [None]
  - DEATH [None]
  - BLOOD UREA INCREASED [None]
  - BLOOD CREATININE INCREASED [None]
